FAERS Safety Report 11097049 (Version 2)
Quarter: 2015Q3

REPORT INFORMATION
  Report Type: Spontaneous
  Country: US (occurrence: US)
  Receive Date: 20150507
  Receipt Date: 20150819
  Transmission Date: 20151125
  Serious: Yes (Other)
  Sender: FDA-Public Use
  Company Number: US-LUNDBECK-DKLU1112323

PATIENT
  Age: 18 Year
  Sex: Male

DRUGS (1)
  1. SABRIL [Suspect]
     Active Substance: VIGABATRIN
     Indication: COMPLEX PARTIAL SEIZURES
     Route: 065
     Dates: start: 20140624

REACTIONS (3)
  - Visual impairment [Unknown]
  - Eyelid disorder [Unknown]
  - Retinogram abnormal [Unknown]

NARRATIVE: CASE EVENT DATE: 20150310
